FAERS Safety Report 4595474-X (Version None)
Quarter: 2005Q1

REPORT INFORMATION
  Report Type: 
  Country: None (occurrence: None)
  Receive Date: 20050302
  Receipt Date: 20050218
  Transmission Date: 20050727
  Serious: Yes (Other)
  Sender: FDA-Public Use
  Company Number: US-JNJFOC-20050205414

PATIENT
  Age: 80 Year
  Sex: Female

DRUGS (3)
  1. REMICADE [Suspect]
     Indication: RHEUMATOID ARTHRITIS
     Dosage: FOR 6 MONTHS
     Route: 042
  2. METHOTREXATE [Concomitant]
  3. RANITIDINE [Concomitant]

REACTIONS (2)
  - ATRIAL FIBRILLATION [None]
  - MYOCARDIAL ISCHAEMIA [None]
